FAERS Safety Report 7799322-6 (Version None)
Quarter: 2011Q4

REPORT INFORMATION
  Report Type: 
  Country: None (occurrence: None)
  Receive Date: 20111006
  Receipt Date: 20110927
  Transmission Date: 20120403
  Serious: Yes (Life-Threatening, Hospitalization)
  Sender: FDA-Public Use
  Company Number: PHHY2011GB87292

PATIENT
  Age: 31 Year
  Sex: Female
  Weight: 63.5 kg

DRUGS (3)
  1. QUETIAPINE [Suspect]
     Dates: start: 20110224, end: 20110506
  2. LORAZEPAM [Suspect]
     Dates: start: 20110224, end: 20110510
  3. CLONAZEPAM [Suspect]
     Dates: start: 20110224, end: 20110410

REACTIONS (32)
  - SEROTONIN SYNDROME [None]
  - PSYCHOTIC DISORDER [None]
  - SWOLLEN TONGUE [None]
  - PUPILLARY DISORDER [None]
  - AGITATION [None]
  - MYALGIA [None]
  - COGWHEEL RIGIDITY [None]
  - PARAESTHESIA [None]
  - ABASIA [None]
  - VISION BLURRED [None]
  - TINNITUS [None]
  - NEUROLEPTIC MALIGNANT SYNDROME [None]
  - HALLUCINATION [None]
  - PAROSMIA [None]
  - SENSORY LOSS [None]
  - MUSCULAR WEAKNESS [None]
  - GAIT DISTURBANCE [None]
  - MUSCULOSKELETAL STIFFNESS [None]
  - PRURITUS [None]
  - INCOHERENT [None]
  - SENSORY DISTURBANCE [None]
  - GASTRIC PH DECREASED [None]
  - VIITH NERVE PARALYSIS [None]
  - MUSCLE RIGIDITY [None]
  - EYE PAIN [None]
  - INCONTINENCE [None]
  - SPEECH DISORDER [None]
  - SCHIZOPHRENIA [None]
  - ARTHRALGIA [None]
  - URINARY RETENTION [None]
  - PAIN [None]
  - DROOLING [None]
